FAERS Safety Report 4438887-9 (Version None)
Quarter: 2004Q3

REPORT INFORMATION
  Report Type: 
  Country: None (occurrence: None)
  Receive Date: 20040830
  Receipt Date: 20040816
  Transmission Date: 20050211
  Serious: Yes (Hospitalization)
  Sender: FDA-Public Use
  Company Number: 203167

PATIENT
  Age: 58 Year
  Sex: Female
  Weight: 103.4201 kg

DRUGS (4)
  1. AVONEX [Suspect]
     Indication: MULTIPLE SCLEROSIS
     Dosage: 30 MCG QW IM
     Route: 030
     Dates: start: 20020101, end: 20030901
  2. AVONEX [Suspect]
     Indication: MULTIPLE SCLEROSIS
     Dosage: 30 MCG QW IM
     Route: 030
     Dates: start: 20030901
  3. LISINOPRIL [Concomitant]
  4. CARDIZEM [Concomitant]

REACTIONS (9)
  - ADHESION [None]
  - ANKLE FRACTURE [None]
  - ARTHRITIS [None]
  - FALL [None]
  - FIBULA FRACTURE [None]
  - MULTIPLE SCLEROSIS [None]
  - MUSCLE SPASMS [None]
  - NASOPHARYNGITIS [None]
  - POLLAKIURIA [None]
